FAERS Safety Report 9942188 (Version 2)
Quarter: 2014Q1

REPORT INFORMATION
  Report Type: Report from Study
  Country: US (occurrence: US)
  Receive Date: 20140303
  Receipt Date: 20140303
  Transmission Date: 20141002
  Serious: No
  Sender: FDA-Public Use
  Company Number: US-ABBVIE-11P-163-0868706-00

PATIENT
  Age: 70 Year
  Sex: Female

DRUGS (13)
  1. HUMIRA [Suspect]
     Indication: CROHN^S DISEASE
     Route: 058
     Dates: start: 20110523
  2. HUMIRA [Suspect]
     Route: 058
  3. HUMIRA [Suspect]
     Route: 058
  4. PROTONIX [Concomitant]
     Indication: CROHN^S DISEASE
     Dosage: DAILY
  5. PROTONIX [Concomitant]
     Dosage: DAILY
  6. ACTONEL [Concomitant]
     Indication: OSTEOPOROSIS
     Dosage: MONTHLY
  7. VITAMIN D WITH CALCIUM [Concomitant]
     Indication: VITAMIN SUPPLEMENTATION
  8. TRAMADOL [Concomitant]
     Indication: CROHN^S DISEASE
  9. LOMOTIL [Concomitant]
     Indication: DIARRHOEA
  10. VIT B12 [Concomitant]
     Indication: VITAMIN B12 DECREASED
  11. ZOFRAN [Concomitant]
     Indication: NAUSEA
  12. OCUVITE [Concomitant]
     Indication: PROPHYLAXIS
     Dates: start: 201207
  13. CREON [Concomitant]
     Indication: ENZYME ABNORMALITY
     Dosage: WITH MEALS

REACTIONS (7)
  - Arthralgia [Not Recovered/Not Resolved]
  - Pain [Not Recovered/Not Resolved]
  - Arthritis [Not Recovered/Not Resolved]
  - Abnormal faeces [Recovering/Resolving]
  - Drug ineffective [Not Recovered/Not Resolved]
  - Sinusitis [Recovered/Resolved]
  - Sinusitis [Recovered/Resolved]
